FAERS Safety Report 5040690-6 (Version None)
Quarter: 2006Q2

REPORT INFORMATION
  Report Type: 
  Country: None (occurrence: None)
  Receive Date: 20060629
  Receipt Date: 20060629
  Transmission Date: 20061013
  Serious: Yes (Life-Threatening)
  Sender: FDA-Public Use
  Company Number: None

PATIENT
  Age: 39 Year
  Sex: Male
  Weight: 78 kg

DRUGS (1)
  1. HURRICAINE SPRAY BENSOCAINE 20% BEUTLICH PHARMACEUTICALS [Suspect]
     Indication: INTUBATION
     Dosage: 3 SPRAYS TOP
     Route: 061

REACTIONS (2)
  - BLOOD METHAEMOGLOBIN PRESENT [None]
  - OXYGEN SATURATION DECREASED [None]
